FAERS Safety Report 25884155 (Version 1)
Quarter: 2025Q4

REPORT INFORMATION
  Report Type: Spontaneous
  Country: US (occurrence: US)
  Receive Date: 20251006
  Receipt Date: 20251006
  Transmission Date: 20260118
  Serious: No
  Sender: BRISTOL-MYERS SQUIBB COMPANY
  Company Number: US-BRISTOL-MYERS SQUIBB COMPANY-2025-132126

PATIENT
  Age: 65 Year
  Sex: Female

DRUGS (3)
  1. ELIQUIS [Suspect]
     Active Substance: APIXABAN
     Indication: Pulmonary embolism
  2. XELJANZ XR [Suspect]
     Active Substance: TOFACITINIB CITRATE
     Indication: Rheumatoid arthritis
     Dosage: ONCE DAILY
     Dates: start: 202103
  3. WEGOVY [Concomitant]
     Active Substance: SEMAGLUTIDE
     Indication: Weight increased

REACTIONS (5)
  - Fall [Unknown]
  - Nasopharyngitis [Unknown]
  - Treatment noncompliance [Unknown]
  - Glycosylated haemoglobin abnormal [Unknown]
  - Limb injury [Unknown]

NARRATIVE: CASE EVENT DATE: 20250801
